FAERS Safety Report 18123442 (Version 4)
Quarter: 2021Q2

REPORT INFORMATION
  Report Type: Report from Study
  Country: JP (occurrence: JP)
  Receive Date: 20200807
  Receipt Date: 20210604
  Transmission Date: 20210717
  Serious: Yes (Hospitalization, Disabling, Other)
  Sender: FDA-Public Use
  Company Number: JP-GLAXOSMITHKLINE-JP2020JPN098336

PATIENT
  Age: 7 Decade
  Sex: Male
  Weight: 60.7 kg

DRUGS (61)
  1. MEPOLIZUMAB [Suspect]
     Active Substance: MEPOLIZUMAB
     Dosage: 300MG EVERY 4 WEEKS
     Route: 058
     Dates: start: 20190118, end: 20190118
  2. MEPOLIZUMAB [Suspect]
     Active Substance: MEPOLIZUMAB
     Dosage: 300MG EVERY 4 WEEKS
     Route: 058
     Dates: start: 20190315, end: 20190315
  3. MEPOLIZUMAB [Suspect]
     Active Substance: MEPOLIZUMAB
     Dosage: 300MG EVERY 4 WEEKS
     Route: 058
     Dates: start: 20190520, end: 20190520
  4. PREDNISOLONE. [Concomitant]
     Active Substance: PREDNISOLONE
     Dosage: 10 MG, 1D
     Dates: start: 20181109, end: 20190214
  5. THEOPHYLLINE SUSTAINED?RELEASE TABLETS [Concomitant]
     Indication: EOSINOPHILIC GRANULOMATOSIS WITH POLYANGIITIS
     Dosage: 400 MG, 1D
     Dates: start: 20180910
  6. BROTIZOLAM TABLETS [Concomitant]
     Active Substance: BROTIZOLAM
     Indication: INSOMNIA
     Dosage: UNK
  7. SODIUM PICOSULFATE ORAL SOLUTION [Concomitant]
     Indication: CONSTIPATION
  8. BETANIS TABLETS [Concomitant]
     Indication: HYPERTONIC BLADDER
     Dosage: UNK
  9. AZOSEMIDE TABLET [Concomitant]
     Indication: OEDEMA
     Dosage: UNK
  10. BAKTAR COMBINATION TABLETS [Concomitant]
     Active Substance: SULFAMETHOXAZOLE\TRIMETHOPRIM
     Dosage: UNK
  11. MEPOLIZUMAB [Suspect]
     Active Substance: MEPOLIZUMAB
     Dosage: 300MG EVERY 4 WEEKS
     Route: 058
     Dates: start: 20190819, end: 20190819
  12. NEORAL [Concomitant]
     Active Substance: CYCLOSPORINE
     Indication: EOSINOPHILIC GRANULOMATOSIS WITH POLYANGIITIS
     Dosage: 100 MG
     Dates: start: 20090423
  13. PREDNISOLONE. [Concomitant]
     Active Substance: PREDNISOLONE
     Dosage: 12 MG, 1D
     Dates: end: 20180910
  14. PREDNISOLONE. [Concomitant]
     Active Substance: PREDNISOLONE
     Dosage: 7 MG, 1D
     Dates: start: 20190315, end: 20190416
  15. PREDNISOLONE. [Concomitant]
     Active Substance: PREDNISOLONE
     Dosage: 5 MG, 1D
     Dates: start: 20190520, end: 20200402
  16. PREDNISOLONE. [Concomitant]
     Active Substance: PREDNISOLONE
     Dosage: 15 MG, 1D
     Dates: start: 20200408, end: 20200423
  17. TSUMURA DAIKENCHUTO [Concomitant]
     Active Substance: HERBALS
     Indication: CONSTIPATION
     Dosage: UNK
  18. MEPOLIZUMAB [Suspect]
     Active Substance: MEPOLIZUMAB
     Dosage: 300MG EVERY 4 WEEKS
     Route: 058
     Dates: start: 20190215, end: 20190215
  19. MEPOLIZUMAB [Suspect]
     Active Substance: MEPOLIZUMAB
     Dosage: 300MG EVERY 4 WEEKS
     Route: 058
     Dates: start: 20190719, end: 20190719
  20. MEPOLIZUMAB [Suspect]
     Active Substance: MEPOLIZUMAB
     Dosage: 300MG EVERY 4 WEEKS
     Route: 058
     Dates: start: 20191213, end: 20191213
  21. MEPOLIZUMAB [Suspect]
     Active Substance: MEPOLIZUMAB
     Dosage: 300MG EVERY 4 WEEKS
     Route: 058
     Dates: start: 20200207, end: 20200207
  22. METHYCOBAL TABLET [Concomitant]
     Indication: EOSINOPHILIC GRANULOMATOSIS WITH POLYANGIITIS
     Dosage: UNK
  23. SENNOSIDES TABLET [Concomitant]
     Active Substance: SENNOSIDES
     Indication: CONSTIPATION
     Dosage: UNK
  24. OLOPATADINE HYDROCHLORIDE TABLETS [Concomitant]
     Active Substance: OLOPATADINE HYDROCHLORIDE
     Dosage: UNK
  25. MEPOLIZUMAB [Suspect]
     Active Substance: MEPOLIZUMAB
     Dosage: 300MG EVERY 4 WEEKS
     Route: 058
     Dates: start: 20191018, end: 20191018
  26. MEPOLIZUMAB [Suspect]
     Active Substance: MEPOLIZUMAB
     Dosage: 300MG EVERY 4 WEEKS
     Route: 058
     Dates: start: 20200403, end: 20200403
  27. PREDNISOLONE. [Concomitant]
     Active Substance: PREDNISOLONE
     Indication: EOSINOPHILIC GRANULOMATOSIS WITH POLYANGIITIS
     Dosage: 5 MG, AT NORMAL TIME
     Dates: start: 20080608
  28. PREDNISOLONE. [Concomitant]
     Active Substance: PREDNISOLONE
     Dosage: 10 MG
     Dates: end: 202007
  29. CELECOX TABLETS [Concomitant]
     Indication: EOSINOPHILIC GRANULOMATOSIS WITH POLYANGIITIS
     Dosage: UNK
  30. LIORESAL [Concomitant]
     Active Substance: BACLOFEN
     Indication: HEMIPARESIS
     Dosage: UNK
  31. TOKAKUJOKITO [Concomitant]
     Indication: CONSTIPATION
     Dosage: UNK
  32. CILOSTAZOL TABLETS [Concomitant]
     Active Substance: CILOSTAZOL
     Indication: CEREBRAL INFARCTION
     Dosage: UNK
  33. PREDNISOLONE. [Concomitant]
     Active Substance: PREDNISOLONE
     Dosage: 13 MG, 1D
     Dates: start: 20200514
  34. TRAZODONE HYDROCHLORIDE TABLETS [Concomitant]
     Active Substance: TRAZODONE HYDROCHLORIDE
     Indication: INSOMNIA
     Dosage: UNK
  35. NIZORAL [Concomitant]
     Active Substance: KETOCONAZOLE
     Indication: TINEA INFECTION
     Dosage: UNK
  36. MEPOLIZUMAB [Suspect]
     Active Substance: MEPOLIZUMAB
     Dosage: 300MG EVERY 4 WEEKS
     Route: 058
     Dates: start: 20181214, end: 20181214
  37. MEPOLIZUMAB [Suspect]
     Active Substance: MEPOLIZUMAB
     Dosage: 300MG EVERY 4 WEEKS
     Route: 058
     Dates: start: 20190417, end: 20190417
  38. NEORAL [Concomitant]
     Active Substance: CYCLOSPORINE
     Dosage: 125 MG, 1D
     Dates: start: 20180910, end: 20181011
  39. NEORAL [Concomitant]
     Active Substance: CYCLOSPORINE
     Dosage: 100 MG, 1D
     Dates: start: 20181012
  40. PREDNISOLONE. [Concomitant]
     Active Substance: PREDNISOLONE
     Dosage: 6 MG, 1D
     Dates: start: 20190417, end: 20190519
  41. PREDNISOLONE. [Concomitant]
     Active Substance: PREDNISOLONE
     Dosage: 10 MG, 1D
     Dates: start: 20200403, end: 20200407
  42. FLUTIDE DISKUS [Concomitant]
     Active Substance: FLUTICASONE PROPIONATE
     Indication: EOSINOPHILIC GRANULOMATOSIS WITH POLYANGIITIS
     Dosage: 400 ?G, 1D
     Route: 055
     Dates: end: 20200512
  43. ALENDRONATE SODIUM TABLET [Concomitant]
     Active Substance: ALENDRONATE SODIUM
     Indication: OSTEOPOROSIS
     Dosage: UNK
  44. MEPOLIZUMAB [Suspect]
     Active Substance: MEPOLIZUMAB
     Dosage: 300MG EVERY 4 WEEKS
     Route: 058
     Dates: start: 20181012, end: 20181012
  45. MEPOLIZUMAB [Suspect]
     Active Substance: MEPOLIZUMAB
     Dosage: 300MG EVERY 4 WEEKS
     Route: 058
     Dates: start: 20190920, end: 20190920
  46. MEPOLIZUMAB [Suspect]
     Active Substance: MEPOLIZUMAB
     Dosage: 300MG EVERY 4 WEEKS
     Route: 058
     Dates: start: 20191115, end: 20191115
  47. MEPOLIZUMAB [Suspect]
     Active Substance: MEPOLIZUMAB
     Dosage: 300MG EVERY 4 WEEKS
     Route: 058
     Dates: start: 20200110, end: 20200110
  48. MEPOLIZUMAB [Suspect]
     Active Substance: MEPOLIZUMAB
     Dosage: 300MG EVERY 4 WEEKS
     Route: 058
     Dates: start: 20200306, end: 20200306
  49. LYRICA OD TABLETS [Concomitant]
     Indication: EOSINOPHILIC GRANULOMATOSIS WITH POLYANGIITIS
     Dosage: UNK
  50. LANSOPRAZOLE?OD TABLETS [Concomitant]
     Indication: CHRONIC GASTRITIS
     Dosage: UNK
  51. FEXOFENADINE HYDROCHLORIDE OD TABLET [Concomitant]
     Dosage: UNK
  52. ASPARA POTASSIUM TABLETS [Concomitant]
     Indication: HYPOKALAEMIA
     Dosage: UNK
  53. HEPARINOID OIL?BASED CREAM 0.3% [Concomitant]
     Indication: ASTEATOSIS
     Dosage: UNK
  54. PULMICORT TURBUHALER [Concomitant]
     Active Substance: BUDESONIDE
     Indication: EOSINOPHILIC GRANULOMATOSIS WITH POLYANGIITIS
     Dosage: 400 ?G, 1D
     Route: 055
     Dates: start: 20200513
  55. MEPOLIZUMAB [Suspect]
     Active Substance: MEPOLIZUMAB
     Indication: EOSINOPHILIC GRANULOMATOSIS WITH POLYANGIITIS
     Dosage: 300MG EVERY 4 WEEKS
     Route: 058
     Dates: start: 20180910, end: 20180910
  56. MEPOLIZUMAB [Suspect]
     Active Substance: MEPOLIZUMAB
     Dosage: 300MG EVERY 4 WEEKS
     Route: 058
     Dates: start: 20181109, end: 20181109
  57. MEPOLIZUMAB [Suspect]
     Active Substance: MEPOLIZUMAB
     Dosage: 300MG EVERY 4 WEEKS
     Route: 058
     Dates: start: 20190617, end: 20190617
  58. PREDNISOLONE. [Concomitant]
     Active Substance: PREDNISOLONE
     Dosage: 8 MG, 1D
     Dates: start: 20190215, end: 20190314
  59. PREDNISOLONE. [Concomitant]
     Active Substance: PREDNISOLONE
     Dosage: 14 MG, 1D
     Dates: start: 20200424, end: 20200513
  60. CALFINA TABLET [Concomitant]
     Indication: OSTEOPOROSIS
     Dosage: UNK
  61. MEPTIN AIR INHALATION [Concomitant]
     Indication: EOSINOPHILIC GRANULOMATOSIS WITH POLYANGIITIS
     Dosage: 10 ?G/DAY WHEN HAVING AN ATTACK
     Route: 055
     Dates: start: 20191018

REACTIONS (7)
  - Hemiparesis [Recovered/Resolved with Sequelae]
  - Disseminated intravascular coagulation [Recovered/Resolved]
  - Urosepsis [Recovered/Resolved]
  - Urinary tract infection [Recovered/Resolved]
  - Purpura [Recovering/Resolving]
  - Wheezing [Recovering/Resolving]
  - Cerebral infarction [Recovered/Resolved with Sequelae]

NARRATIVE: CASE EVENT DATE: 201911
